FAERS Safety Report 8597385-1 (Version None)
Quarter: 2012Q3

REPORT INFORMATION
  Report Type: 
  Country: None (occurrence: None)
  Receive Date: 20120801
  Receipt Date: 20120726
  Transmission Date: 20120928
  Serious: Yes (Death, Hospitalization)
  Sender: FDA-Public Use
  Company Number: 2009002030

PATIENT
  Age: 67 Year
  Sex: Male

DRUGS (10)
  1. PANVITAN [Concomitant]
  2. MUCODYNE (CARBOCISTEINE) [Concomitant]
  3. FAMOTIDINE [Concomitant]
  4. ISOSORBIDE MONONITRATE [Concomitant]
  5. BASEN (VOGLIBOSE) [Concomitant]
  6. GLIMICRON (GLICLAZIDE) [Concomitant]
  7. PIPERACILLIN [Concomitant]
  8. BUFFERIN [Concomitant]
  9. DILTIAZEM HYDROCHLORIDE [Concomitant]
  10. TARCEVA [Suspect]
     Indication: NON-SMALL CELL LUNG CANCER
     Dosage: 150 MG, UID/QD, ORAL
     Route: 048
     Dates: start: 20090105, end: 20090113

REACTIONS (3)
  - INTERSTITIAL LUNG DISEASE [None]
  - DISSEMINATED INTRAVASCULAR COAGULATION [None]
  - DYSPNOEA [None]
